FAERS Safety Report 21123542 (Version 1)
Quarter: 2022Q3

REPORT INFORMATION
  Report Type: Spontaneous
  Country: GB (occurrence: GB)
  Receive Date: 20220724
  Receipt Date: 20220724
  Transmission Date: 20221027
  Serious: Yes (Hospitalization, Other)
  Sender: FDA-Public Use
  Company Number: GB-GILEAD-2022-0590250

PATIENT
  Age: 41 Year
  Sex: Male

DRUGS (7)
  1. YESCARTA [Suspect]
     Active Substance: AXICABTAGENE CILOLEUCEL
     Indication: Diffuse large B-cell lymphoma
     Dosage: UNK
     Route: 065
     Dates: start: 20210222, end: 20210222
  2. BENDAMUSTINE [Concomitant]
     Active Substance: BENDAMUSTINE
     Dosage: UNK
     Dates: start: 202012
  3. POLATUZUMAB VEDOTIN [Concomitant]
     Active Substance: POLATUZUMAB VEDOTIN
     Dosage: UNK
     Dates: start: 202012
  4. RITUXIMAB [Concomitant]
     Active Substance: RITUXIMAB
     Dosage: UNK
     Dates: start: 202012
  5. FLUDARABINE [Concomitant]
     Active Substance: FLUDARABINE PHOSPHATE
     Dosage: UNK
     Dates: start: 20210217
  6. CYCLOPHOSPHAMIDE [Concomitant]
     Active Substance: CYCLOPHOSPHAMIDE
     Dosage: UNK
     Dates: start: 20210217
  7. FILGRASTIM [Concomitant]
     Active Substance: FILGRASTIM

REACTIONS (20)
  - COVID-19 [Unknown]
  - COVID-19 [Unknown]
  - Post-acute COVID-19 syndrome [Unknown]
  - Respiratory tract infection [Unknown]
  - Infection [Unknown]
  - Cytokine release syndrome [Recovered/Resolved]
  - Fatigue [Unknown]
  - Malaise [Unknown]
  - Headache [Unknown]
  - Febrile neutropenia [Recovering/Resolving]
  - Pyrexia [Unknown]
  - Immune effector cell-associated neurotoxicity syndrome [Recovered/Resolved]
  - Mental impairment [Unknown]
  - Gait disturbance [Unknown]
  - Vision blurred [Unknown]
  - Confusional state [Recovering/Resolving]
  - B-cell aplasia [Unknown]
  - Pain [Unknown]
  - Nausea [Unknown]
  - Agitation [Unknown]

NARRATIVE: CASE EVENT DATE: 20210223
